FAERS Safety Report 4876295-7 (Version None)
Quarter: 2005Q4

REPORT INFORMATION
  Report Type: 
  Country: None (occurrence: None)
  Receive Date: 20051206
  Receipt Date: 20050810
  Transmission Date: 20060501
  Serious: No
  Sender: FDA-Public Use
  Company Number: USA0508105180

PATIENT
  Age: 76 Year
  Sex: Male

DRUGS (6)
  1. CYMBALTA [Suspect]
     Dosage: 60 MG DAY
     Dates: start: 20050701, end: 20050806
  2. TOPROL-XL [Concomitant]
  3. ATACAND [Concomitant]
  4. METFORMIN [Concomitant]
  5. CELEBREX [Concomitant]
  6. PREVACID [Concomitant]

REACTIONS (8)
  - CONSTIPATION [None]
  - DRY MOUTH [None]
  - HYPERHIDROSIS [None]
  - INSOMNIA [None]
  - MALAISE [None]
  - NAUSEA [None]
  - NIGHTMARE [None]
  - SEXUAL DYSFUNCTION [None]
